FAERS Safety Report 17043786 (Version 1)
Quarter: 2019Q4

REPORT INFORMATION
  Report Type: Spontaneous
  Country: IN (occurrence: IN)
  Receive Date: 20191118
  Receipt Date: 20191118
  Transmission Date: 20200122
  Serious: Yes (Death, Other)
  Sender: FDA-Public Use
  Company Number: IN-PFIZER INC-2019210002

PATIENT
  Age: 62 Year
  Sex: Female

DRUGS (6)
  1. CALCIMAX FORTE [Concomitant]
     Dosage: 1 MG, 1X/DAY , (3 MONTHS)
  2. ZOLDRIA [Suspect]
     Active Substance: ZOLEDRONIC ACID
     Dosage: 4 MG, UNK
     Route: 042
     Dates: start: 20180601
  3. FULVESTRANT. [Suspect]
     Active Substance: FULVESTRANT
     Dosage: 500 MG, UNK
     Route: 030
     Dates: start: 20190828, end: 20190925
  4. PALBACE [Suspect]
     Active Substance: PALBOCICLIB
     Indication: BREAST CANCER METASTATIC
     Dosage: 125 MG, 1X/DAY FOR 21 DAYS, 3 MONTHS
     Route: 048
     Dates: start: 20180602, end: 201908
  5. FOLVITE [Concomitant]
     Active Substance: FOLIC ACID
     Dosage: 5 MG, 1X/DAY (FOR 3 MONTHS)
  6. SUPRADYN [Concomitant]
     Active Substance: ASCORBIC ACID\MINERALS\VITAMINS
     Dosage: 1 DF, DAILY (FOR 3 MONTHS)

REACTIONS (4)
  - Pyrexia [Unknown]
  - Death [Fatal]
  - Platelet count decreased [Unknown]
  - Infection [Unknown]

NARRATIVE: CASE EVENT DATE: 20191111
